FAERS Safety Report 12392389 (Version 2)
Quarter: 2016Q3

REPORT INFORMATION
  Report Type: Spontaneous
  Country: US (occurrence: US)
  Receive Date: 20160523
  Receipt Date: 20160712
  Transmission Date: 20161109
  Serious: Yes (Hospitalization)
  Sender: FDA-Public Use
  Company Number: US-BAXTER-2016BAX023188

PATIENT
  Age: 55 Year
  Sex: Female

DRUGS (1)
  1. DIANEAL LOW CALCIUM PERITONEAL DIALYSIS SOLUTION WITH DEXTROSE [Suspect]
     Active Substance: CALCIUM CHLORIDE\DEXTROSE\MAGNESIUM CHLORIDE\SODIUM CHLORIDE\SODIUM LACTATE
     Indication: END STAGE RENAL DISEASE
     Route: 033
     Dates: start: 2014

REACTIONS (7)
  - Impaired healing [Unknown]
  - Cerebrovascular accident [Unknown]
  - Blood pressure abnormal [Unknown]
  - Fluid retention [Unknown]
  - Osteomyelitis [Not Recovered/Not Resolved]
  - Diabetic foot [Recovering/Resolving]
  - Nosocomial infection [Unknown]

NARRATIVE: CASE EVENT DATE: 201603
